FAERS Safety Report 5528394-4 (Version None)
Quarter: 2007Q4

REPORT INFORMATION
  Report Type: 
  Country: None (occurrence: None)
  Receive Date: 20071121
  Receipt Date: 20071107
  Transmission Date: 20080405
  Serious: Yes (Other)
  Sender: FDA-Public Use
  Company Number: 2007BI012794

PATIENT
  Age: 17 Year
  Sex: Female

DRUGS (6)
  1. AVONEX [Suspect]
     Indication: RELAPSING-REMITTING MULTIPLE SCLEROSIS
     Dosage: 15 UG; QW; IM
     Route: 030
     Dates: start: 20070528, end: 20070528
  2. BRUFEN [Concomitant]
  3. SELBEX [Concomitant]
  4. RIVOTRIL [Concomitant]
  5. DIAZEPAM [Concomitant]
  6. ALLELOCK [Concomitant]

REACTIONS (1)
  - WHITE BLOOD CELL COUNT DECREASED [None]
